FAERS Safety Report 8537812-9 (Version None)
Quarter: 2012Q3

REPORT INFORMATION
  Report Type: 
  Country: None (occurrence: None)
  Receive Date: 20120725
  Receipt Date: 20120718
  Transmission Date: 20120928
  Serious: Yes (Hospitalization, Other)
  Sender: FDA-Public Use
  Company Number: US-BAXTER-2012BAX010571

PATIENT
  Sex: Female
  Weight: 64.5 kg

DRUGS (11)
  1. PROGESTERONE [Concomitant]
     Route: 061
  2. TYLENOL PM [Concomitant]
     Route: 048
  3. ZYRTEC [Concomitant]
     Route: 048
  4. VIVELLE-DOT [Concomitant]
     Route: 061
  5. PLAQUENIL [Concomitant]
     Route: 048
  6. METOFORMIN [Concomitant]
     Route: 048
  7. DEXILANT [Concomitant]
     Route: 048
  8. GAMMAGARD LIQUID [Suspect]
     Indication: PRIMARY IMMUNODEFICIENCY SYNDROME
     Route: 042
     Dates: start: 20120619, end: 20120619
  9. ZOLOFT [Concomitant]
     Route: 048
  10. MESTINON [Concomitant]
     Indication: MYASTHENIA GRAVIS
     Route: 048
  11. VERAMYST [Concomitant]
     Route: 045

REACTIONS (6)
  - DIARRHOEA [None]
  - CLOSTRIDIAL INFECTION [None]
  - HEADACHE [None]
  - GASTRIC DILATATION [None]
  - MENINGITIS [None]
  - ADVERSE EVENT [None]
